FAERS Safety Report 14934359 (Version 1)
Quarter: 2018Q2

REPORT INFORMATION
  Report Type: Spontaneous
  Country: US (occurrence: US)
  Receive Date: 20180505
  Receipt Date: 20180505
  Transmission Date: 20180711
  Serious: Yes (Life-Threatening, Hospitalization, Other)
  Sender: FDA-Public Use
  Company Number: None

PATIENT
  Age: 25 Year
  Sex: Female
  Weight: 96.16 kg

DRUGS (3)
  1. HYDROCODONE [Concomitant]
     Active Substance: HYDROCODONE
  2. IBUPROFEN. [Concomitant]
     Active Substance: IBUPROFEN
  3. MIRENA [Suspect]
     Active Substance: LEVONORGESTREL

REACTIONS (9)
  - Depression [None]
  - Procedural pain [None]
  - Complication associated with device [None]
  - Ovarian cyst [None]
  - Fallopian tube disorder [None]
  - Muscle spasms [None]
  - Abdominal pain [None]
  - Device related infection [None]
  - Headache [None]

NARRATIVE: CASE EVENT DATE: 20180424
